FAERS Safety Report 25169915 (Version 3)
Quarter: 2025Q2

REPORT INFORMATION
  Report Type: Report from Study
  Country: US (occurrence: US)
  Receive Date: 20250407
  Receipt Date: 20250520
  Transmission Date: 20250716
  Serious: Yes (Other)
  Sender: TAKEDA
  Company Number: US-TAKEDA-2025TUS032601

PATIENT
  Age: 55 Year
  Sex: Female
  Weight: 118.78 kg

DRUGS (2)
  1. FRUQUINTINIB [Suspect]
     Active Substance: FRUQUINTINIB
     Indication: Colon cancer
     Dates: start: 20250310, end: 20250318
  2. FRUQUINTINIB [Suspect]
     Active Substance: FRUQUINTINIB
     Dosage: 3 MILLIGRAM, QD
     Dates: start: 20250322

REACTIONS (15)
  - Hepatic neoplasm [Unknown]
  - Ascites [Unknown]
  - Heart rate decreased [Unknown]
  - Gastric dilatation [Not Recovered/Not Resolved]
  - Flatulence [Unknown]
  - Chills [Unknown]
  - Incisional hernia [Unknown]
  - Dyspnoea [Unknown]
  - Joint swelling [Unknown]
  - Off label use [Unknown]
  - Vomiting [Unknown]
  - Hepatic enzyme increased [Unknown]
  - Abdominal distension [Recovered/Resolved]
  - Umbilical hernia [Unknown]
  - Blood pressure increased [Unknown]

NARRATIVE: CASE EVENT DATE: 20250301
